FAERS Safety Report 4591489-6 (Version None)
Quarter: 2005Q1

REPORT INFORMATION
  Report Type: 
  Country: None (occurrence: None)
  Receive Date: 20050222
  Receipt Date: 20050207
  Transmission Date: 20050727
  Serious: Yes (Other)
  Sender: FDA-Public Use
  Company Number: 2004089702

PATIENT
  Age: 55 Year
  Sex: Female

DRUGS (3)
  1. HALCION [Suspect]
     Indication: INSOMNIA
     Dosage: 0.5 MG ORAL
     Route: 048
     Dates: start: 20041103
  2. PYRIDOXAL (PYRIDOXAL) [Concomitant]
  3. ETIZOLAM (ETIZOLAM) [Concomitant]

REACTIONS (2)
  - DEPRESSED LEVEL OF CONSCIOUSNESS [None]
  - HYPOGLYCAEMIA [None]
